FAERS Safety Report 20373885 (Version 1)
Quarter: 2022Q1

REPORT INFORMATION
  Report Type: Spontaneous
  Country: JP (occurrence: JP)
  Receive Date: 20220125
  Receipt Date: 20220125
  Transmission Date: 20220424
  Serious: Yes (Other)
  Sender: FDA-Public Use
  Company Number: JP-Accord-251649

PATIENT
  Age: 2 Year
  Sex: Male
  Weight: 9.9 kg

DRUGS (3)
  1. HYDROCHLOROTHIAZIDE [Suspect]
     Active Substance: HYDROCHLOROTHIAZIDE
     Indication: Nephrogenic diabetes insipidus
     Dosage: 2 MG/KG/D GRADUAL INCREASE UP TO 6 MG/KG/D, ALSO 4MG/KG/DAY
  2. SPIRONOLACTONE [Suspect]
     Active Substance: SPIRONOLACTONE
     Indication: Nephrogenic diabetes insipidus
  3. PITRESSIN [Concomitant]
     Active Substance: VASOPRESSIN
     Dosage: EXOGENOUS VASOPRESSIN (PITRESSIN 5 U/M2)
     Route: 058

REACTIONS (3)
  - Hypokalaemia [Unknown]
  - Hydronephrosis [Unknown]
  - Growth retardation [Unknown]
